FAERS Safety Report 20518079 (Version 1)
Quarter: 2022Q1

REPORT INFORMATION
  Report Type: Spontaneous
  Country: FR (occurrence: FR)
  Receive Date: 20220225
  Receipt Date: 20220225
  Transmission Date: 20220424
  Serious: Yes (Hospitalization, Other)
  Sender: FDA-Public Use
  Company Number: None

PATIENT

DRUGS (2)
  1. SUBUTEX [Suspect]
     Active Substance: BUPRENORPHINE HYDROCHLORIDE
     Indication: Product used for unknown indication
     Dosage: 8 MILLIGRAM, QD
     Route: 042
     Dates: start: 2010, end: 202102
  2. TOBACCO LEAF [Suspect]
     Active Substance: TOBACCO LEAF
     Indication: Product used for unknown indication
     Dosage: 20 CIGARETTES PER DAY
     Route: 055

REACTIONS (9)
  - Deep vein thrombosis [Recovered/Resolved]
  - Pulmonary embolism [Recovered/Resolved]
  - Hydrocephalus [Recovered/Resolved]
  - Meningitis staphylococcal [Recovered/Resolved]
  - Bone abscess [Recovered/Resolved]
  - Starvation [Recovering/Resolving]
  - Injection site ulcer [Recovering/Resolving]
  - Off label use [Recovered/Resolved with Sequelae]
  - Drug abuse [Recovering/Resolving]

NARRATIVE: CASE EVENT DATE: 19900101
